FAERS Safety Report 21808940 (Version 2)
Quarter: 2023Q1

REPORT INFORMATION
  Report Type: Spontaneous
  Country: IN (occurrence: IN)
  Receive Date: 20230103
  Receipt Date: 20230125
  Transmission Date: 20230418
  Serious: Yes (Other)
  Sender: FDA-Public Use
  Company Number: IN-002147023-NVSC2022IN299942

PATIENT
  Age: 60 Year
  Sex: Female

DRUGS (4)
  1. BROLUCIZUMAB [Suspect]
     Active Substance: BROLUCIZUMAB
     Indication: Neovascular age-related macular degeneration
     Dosage: UNK
     Route: 065
     Dates: start: 20220902
  2. BROLUCIZUMAB [Suspect]
     Active Substance: BROLUCIZUMAB
     Dosage: UNK, Q8W
     Route: 031
     Dates: start: 20221005
  3. BROLUCIZUMAB [Suspect]
     Active Substance: BROLUCIZUMAB
     Dosage: UNK
     Route: 065
     Dates: start: 20221111
  4. BROLUCIZUMAB [Suspect]
     Active Substance: BROLUCIZUMAB
     Dosage: UNK, Q8W
     Route: 031
     Dates: start: 20221207

REACTIONS (8)
  - Glaucoma [Unknown]
  - Retinal vasculitis [Recovering/Resolving]
  - Corneal opacity [Unknown]
  - Retinal perivascular sheathing [Unknown]
  - Retinal vascular occlusion [Unknown]
  - Blindness [Unknown]
  - Eye inflammation [Unknown]
  - Vision blurred [Unknown]

NARRATIVE: CASE EVENT DATE: 20221120
